FAERS Safety Report 8457650-5 (Version None)
Quarter: 2012Q2

REPORT INFORMATION
  Report Type: 
  Country: None (occurrence: None)
  Receive Date: 20120622
  Receipt Date: 20120620
  Transmission Date: 20120825
  Serious: No
  Sender: FDA-Public Use
  Company Number: US-PFIZER INC-2012149317

PATIENT
  Sex: Female
  Weight: 95.238 kg

DRUGS (12)
  1. CELEBREX [Suspect]
     Indication: INFLAMMATION
  2. LYRICA [Suspect]
     Indication: ARTHRITIS
     Dosage: 75 MG, 2X/DAY
     Route: 048
     Dates: start: 20100101
  3. LYRICA [Suspect]
     Indication: PAIN
  4. CELEBREX [Suspect]
     Indication: ARTHRITIS
     Dosage: 100 MG, 2X/DAY
     Route: 048
     Dates: start: 20110101, end: 20120101
  5. CELEBREX [Suspect]
     Indication: PAIN
  6. XANAX [Suspect]
     Indication: HYPERTENSION
     Dosage: 0.5 MG, 3X/DAY
     Route: 048
     Dates: start: 20100101
  7. AMLODIPINE [Concomitant]
     Dosage: UNK
  8. LISINOPRIL [Concomitant]
     Dosage: UNK
  9. PLAVIX [Concomitant]
     Dosage: UNK
  10. XANAX [Suspect]
     Indication: ANXIETY
  11. LYRICA [Suspect]
     Indication: INFLAMMATION
  12. SIMVASTATIN [Concomitant]
     Dosage: UNK

REACTIONS (1)
  - ARTHRALGIA [None]
